FAERS Safety Report 8683266 (Version 3)
Quarter: 2013Q3

REPORT INFORMATION
  Report Type: Spontaneous
  Country: US (occurrence: US)
  Receive Date: 20120726
  Receipt Date: 20130724
  Transmission Date: 20140515
  Serious: No
  Sender: FDA-Public Use
  Company Number: US-009507513-2012SP036026

PATIENT
  Age: 32 Year
  Sex: Female
  Weight: 141.7 kg

DRUGS (1)
  1. IMPLANON [Suspect]
     Dosage: UNK MG, UNK
     Route: 059
     Dates: start: 201110

REACTIONS (1)
  - Unintended pregnancy [Unknown]
